FAERS Safety Report 18554880 (Version 2)
Quarter: 2020Q4

REPORT INFORMATION
  Report Type: Report from Study
  Country: US (occurrence: US)
  Receive Date: 20201127
  Receipt Date: 20201207
  Transmission Date: 20210114
  Serious: Yes (Hospitalization, Other)
  Sender: FDA-Public Use
  Company Number: US-JNJFOC-20201033473

PATIENT
  Age: 77 Year
  Sex: Female
  Weight: 90.8 kg

DRUGS (3)
  1. ADCIRCA [Concomitant]
     Active Substance: TADALAFIL
  2. MACITENTAN [Suspect]
     Active Substance: MACITENTAN
     Indication: PULMONARY ARTERIAL HYPERTENSION
     Route: 048
     Dates: start: 20200820
  3. TYVASO [Concomitant]
     Active Substance: TREPROSTINIL

REACTIONS (5)
  - Oxygen saturation decreased [Recovering/Resolving]
  - Pneumonia [Recovering/Resolving]
  - Product dose omission issue [Recovered/Resolved]
  - Urinary tract infection [Recovering/Resolving]
  - Sinusitis [Recovering/Resolving]

NARRATIVE: CASE EVENT DATE: 20201016
